FAERS Safety Report 16399265 (Version 2)
Quarter: 2019Q2

REPORT INFORMATION
  Report Type: Spontaneous
  Country: US (occurrence: US)
  Receive Date: 20190606
  Receipt Date: 20190613
  Transmission Date: 20190711
  Serious: No
  Sender: FDA-Public Use
  Company Number: US-GLAXOSMITHKLINE-US2019AMR101545

PATIENT
  Age: 55 Year
  Sex: Female

DRUGS (3)
  1. FLOLAN [Suspect]
     Active Substance: EPOPROSTENOL SODIUM
     Indication: PULMONARY ARTERIAL HYPERTENSION
     Dosage: 64 NG/KG/MIN, CO
     Route: 042
     Dates: start: 20061215
  2. FLOLAN [Suspect]
     Active Substance: EPOPROSTENOL SODIUM
     Dosage: 66.7 NG/KG/MIN, CO
     Route: 042
     Dates: start: 201906
  3. FLOLAN DILUENT PH 12 SOLUTION FOR INJECTION [Suspect]
     Active Substance: GLYCINE\MANNITOL\SODIUM CHLORIDE
     Indication: PULMONARY ARTERIAL HYPERTENSION
     Dosage: UNK
     Route: 042
     Dates: start: 20190121

REACTIONS (4)
  - Incorrect dose administered [Unknown]
  - Complication associated with device [Unknown]
  - Intentional overdose [Unknown]
  - Asthenia [Recovering/Resolving]

NARRATIVE: CASE EVENT DATE: 201906
